FAERS Safety Report 23977578 (Version 1)
Quarter: 2024Q2

REPORT INFORMATION
  Report Type: Other
  Country: GT (occurrence: GT)
  Receive Date: 20240614
  Receipt Date: 20240614
  Transmission Date: 20240716
  Serious: No
  Sender: FDA-Public Use
  Company Number: GT-TOLMAR, INC.-24GT049612

PATIENT
  Sex: Male

DRUGS (5)
  1. ELIGARD [Suspect]
     Active Substance: LEUPROLIDE ACETATE
     Indication: Prostate cancer
     Dosage: 45 MILLIGRAM, Q 6 MONTH
     Route: 058
     Dates: start: 20240320
  2. ELIGARD [Suspect]
     Active Substance: LEUPROLIDE ACETATE
     Dosage: 45 MILLIGRAM, Q 6 MONTH
     Route: 058
  3. ELIGARD [Suspect]
     Active Substance: LEUPROLIDE ACETATE
     Indication: Prostate cancer
     Dosage: UNK
  4. POTENCIATOR [Concomitant]
     Indication: Product used for unknown indication
     Dosage: 5 MILLIGRAM
     Dates: start: 20230912
  5. DUTAFLOX [Concomitant]
     Indication: Product used for unknown indication
     Dosage: UNK
     Dates: start: 20240312

REACTIONS (5)
  - Eating disorder [Recovered/Resolved]
  - Anaemia [Unknown]
  - Pain [Recovered/Resolved]
  - Asthenia [Not Recovered/Not Resolved]
  - Insomnia [Recovered/Resolved]
